FAERS Safety Report 5988476-X (Version None)
Quarter: 2008Q4

REPORT INFORMATION
  Report Type: 
  Country: None (occurrence: None)
  Receive Date: 20081210
  Receipt Date: 20081128
  Transmission Date: 20090506
  Serious: Yes (Hospitalization)
  Sender: FDA-Public Use
  Company Number: JP-ABBOTT-08P-087-0491759-00

PATIENT
  Age: 86 Year
  Sex: Male

DRUGS (5)
  1. LEUPROLIDE ACETATE [Suspect]
     Indication: PROSTATE CANCER
     Route: 058
     Dates: start: 20060619, end: 20071106
  2. LEUPROLIDE ACETATE [Suspect]
     Indication: PROSTATE CANCER
     Dates: start: 20050809, end: 20060619
  3. LEUPROLIDE ACETATE [Suspect]
  4. CHLORMADINONE ACETATE TAB [Concomitant]
     Indication: PROSTATE CANCER
     Route: 048
  5. LEVOFLOXACIN [Concomitant]
     Indication: URINARY TRACT INFECTION
     Route: 048
     Dates: start: 20060817

REACTIONS (1)
  - PNEUMONIA [None]
